FAERS Safety Report 7291240-5 (Version None)
Quarter: 2011Q1

REPORT INFORMATION
  Report Type: 
  Country: None (occurrence: None)
  Receive Date: 20110202
  Receipt Date: 20110125
  Transmission Date: 20110831
  Serious: Yes (Other)
  Sender: FDA-Public Use
  Company Number: GER/UKI/11/0017219

PATIENT
  Age: 62 Year
  Sex: Female

DRUGS (1)
  1. ALENDRONIC ACID (ALENDRONIC ACID) [Suspect]
     Indication: OSTEOPOROSIS
     Dosage: 70 MG, 1 IN 1 WK, ORAL
     Route: 048
     Dates: start: 20030101

REACTIONS (9)
  - TOOTH EXTRACTION [None]
  - NASAL POLYPS [None]
  - HYPERCALCAEMIA [None]
  - UPPER AIRWAY OBSTRUCTION [None]
  - PAIN [None]
  - ULCER [None]
  - OROANTRAL FISTULA [None]
  - OSTEONECROSIS [None]
  - LYMPHADENOPATHY [None]
